FAERS Safety Report 18400288 (Version 1)
Quarter: 2020Q4

REPORT INFORMATION
  Report Type: Spontaneous
  Country: US (occurrence: US)
  Receive Date: 20201019
  Receipt Date: 20201019
  Transmission Date: 20210114
  Serious: No
  Sender: FDA-Public Use
  Company Number: US-ALLERGAN-2035446US

PATIENT
  Age: 54 Year
  Sex: Male

DRUGS (19)
  1. ASA [Concomitant]
     Active Substance: ASPIRIN
     Dosage: 81 MG
  2. ATORVASTATIN [Concomitant]
     Active Substance: ATORVASTATIN
     Dosage: 40 MG
  3. BENZTROPINE. [Concomitant]
     Active Substance: BENZTROPINE
     Dosage: 0.5 MG
  4. METOPROLOL. [Concomitant]
     Active Substance: METOPROLOL
     Dosage: 50 MG
  5. HYDRALAZINE [Concomitant]
     Active Substance: HYDRALAZINE HYDROCHLORIDE
     Dosage: 100 MG
  6. METOPROLOL. [Concomitant]
     Active Substance: METOPROLOL
     Dosage: 200 MG
  7. SEROQUEL [Concomitant]
     Active Substance: QUETIAPINE FUMARATE
     Dosage: 100 MG
  8. VITAMIN B1 [Concomitant]
     Active Substance: THIAMINE HYDROCHLORIDE
  9. DOXAZOSIN [Concomitant]
     Active Substance: DOXAZOSIN MESYLATE
     Dosage: 49 MG
  10. ISOSORBIDE. [Concomitant]
     Active Substance: ISOSORBIDE
     Dosage: 30 MG
  11. VRAYLAR [Suspect]
     Active Substance: CARIPRAZINE
     Indication: PRODUCT USED FOR UNKNOWN INDICATION
     Dosage: 1.5 MG
  12. PROTONIX [Concomitant]
     Active Substance: PANTOPRAZOLE SODIUM
     Dosage: 40 MG
  13. VITAMIN D2 [Concomitant]
     Active Substance: ERGOCALCIFEROL
  14. BACLOFEN. [Concomitant]
     Active Substance: BACLOFEN
     Dosage: 10 MG
  15. NICOTINE. [Concomitant]
     Active Substance: NICOTINE
     Dosage: 14 MG/25 HOUR
  16. SEROQUEL [Concomitant]
     Active Substance: QUETIAPINE FUMARATE
     Dosage: 25 UNK
  17. VASOFLEX D1 [Concomitant]
     Dosage: 900-100 MG
  18. FLUTICASONE. [Concomitant]
     Active Substance: FLUTICASONE
     Dosage: 49 MG
  19. FOLIC ACID. [Concomitant]
     Active Substance: FOLIC ACID
     Dosage: 49 MG

REACTIONS (1)
  - Renal disorder [Unknown]
